FAERS Safety Report 6703083-9 (Version None)
Quarter: 2010Q2

REPORT INFORMATION
  Report Type: 
  Country: None (occurrence: None)
  Receive Date: 20100427
  Receipt Date: 20100421
  Transmission Date: 20101027
  Serious: Yes (Other)
  Sender: FDA-Public Use
  Company Number: WAES 1001SWE00006

PATIENT
  Age: 85 Year
  Sex: Male

DRUGS (8)
  1. TAB LAROPIPRANT (+) NIACIN [Suspect]
     Indication: HIGH DENSITY LIPOPROTEIN DECREASED
     Dosage: 1 GM/DAILY PO
     Route: 048
     Dates: start: 20080423, end: 20080521
  2. TAB LAROPIPRANT (+) NIACIN [Suspect]
     Indication: HIGH DENSITY LIPOPROTEIN DECREASED
     Dosage: 2 GM/DAILY PO; PO
     Route: 048
     Dates: start: 20080522, end: 20080601
  3. TAB LAROPIPRANT (+) NIACIN [Suspect]
     Indication: HIGH DENSITY LIPOPROTEIN DECREASED
     Dosage: 2 GM/DAILY PO; PO
     Route: 048
     Dates: start: 20080701, end: 20100108
  4. TAB VITORIN (EZETIMIBE (+) SIMVASTATIN) [Suspect]
     Indication: HYPERCHOLESTEROLAEMIA
     Dosage: 10/40 MG/DAILY PO
     Route: 048
     Dates: start: 20080325, end: 20100108
  5. IMDUR [Concomitant]
  6. LASIX [Concomitant]
  7. ASPIRIN [Concomitant]
  8. METOPROLOL [Concomitant]

REACTIONS (6)
  - ALANINE AMINOTRANSFERASE INCREASED [None]
  - BLOOD ALKALINE PHOSPHATASE INCREASED [None]
  - BLOOD BILIRUBIN INCREASED [None]
  - FATIGUE [None]
  - HEPATIC CYST [None]
  - LIVER DISORDER [None]
